FAERS Safety Report 18928027 (Version 1)
Quarter: 2021Q1

REPORT INFORMATION
  Report Type: Report from Study
  Country: US (occurrence: US)
  Receive Date: 20210223
  Receipt Date: 20210223
  Transmission Date: 20210420
  Serious: Yes (Other)
  Sender: FDA-Public Use
  Company Number: US-BIOGEN-2021BI00980965

PATIENT
  Sex: Female

DRUGS (1)
  1. TYSABRI [Suspect]
     Active Substance: NATALIZUMAB
     Indication: MULTIPLE SCLEROSIS
     Route: 065
     Dates: start: 20200831

REACTIONS (12)
  - Nausea [Unknown]
  - Neck pain [Unknown]
  - Pain [Unknown]
  - Depression [Unknown]
  - Influenza like illness [Unknown]
  - Neuralgia [Unknown]
  - Obstructive airways disorder [Unknown]
  - Asthenia [Unknown]
  - Mobility decreased [Unknown]
  - Arthralgia [Unknown]
  - Fatigue [Unknown]
  - Pulmonary hypertension [Unknown]
